FAERS Safety Report 9254463 (Version 1)
Quarter: 2013Q2

REPORT INFORMATION
  Report Type: Spontaneous
  Country: BR (occurrence: None)
  Receive Date: 20130419
  Receipt Date: 20130419
  Transmission Date: 20140414
  Serious: Yes (Death)
  Sender: FDA-Public Use
  Company Number: DSU-2013-02944

PATIENT
  Sex: Female

DRUGS (1)
  1. OLMETEC [Suspect]
     Indication: BLOOD PRESSURE
     Route: 048
     Dates: start: 20100921

REACTIONS (1)
  - Pancreatitis acute [None]
